FAERS Safety Report 14010524 (Version 3)
Quarter: 2017Q4

REPORT INFORMATION
  Report Type: Spontaneous
  Country: US (occurrence: US)
  Receive Date: 20170926
  Receipt Date: 20171018
  Transmission Date: 20180321
  Serious: Yes (Hospitalization, Congenital Anomaly, Other)
  Sender: FDA-Public Use
  Company Number: US-BIOGEN-2013BI066623

PATIENT
  Age: 0 Year
  Sex: Male
  Weight: .74 kg

DRUGS (2)
  1. AVONEX [Suspect]
     Active Substance: INTERFERON BETA-1A
     Indication: MATERNAL EXPOSURE TIMING UNSPECIFIED
     Route: 064
     Dates: start: 20050429, end: 20100402
  2. AVONEX [Suspect]
     Active Substance: INTERFERON BETA-1A
     Route: 064
     Dates: start: 2010

REACTIONS (9)
  - Necrotising colitis [Recovered/Resolved]
  - Foetal exposure during pregnancy [Recovered/Resolved]
  - Asthma [Recovered/Resolved]
  - Premature baby [Recovered/Resolved]
  - Atrial septal defect [Recovered/Resolved]
  - Patent ductus arteriosus [Recovered/Resolved]
  - Apgar score low [Unknown]
  - Hyperhidrosis [Recovered/Resolved]
  - Hernia [Recovered/Resolved]

NARRATIVE: CASE EVENT DATE: 2010
